FAERS Safety Report 21942973 (Version 1)
Quarter: 2023Q1

REPORT INFORMATION
  Report Type: Spontaneous
  Country: US (occurrence: US)
  Receive Date: 20230202
  Receipt Date: 20230202
  Transmission Date: 20230418
  Serious: No
  Sender: FDA-Public Use
  Company Number: US-BIOGEN-2020BI00894192

PATIENT
  Sex: Female

DRUGS (2)
  1. TECFIDERA [Suspect]
     Active Substance: DIMETHYL FUMARATE
     Indication: Multiple sclerosis
     Route: 050
     Dates: start: 20130409, end: 2022
  2. AMPYRA [Suspect]
     Active Substance: DALFAMPRIDINE
     Indication: Gait disturbance
     Route: 050

REACTIONS (5)
  - Product dose omission in error [Not Recovered/Not Resolved]
  - Ligament sprain [Not Recovered/Not Resolved]
  - Loss of control of legs [Unknown]
  - Secondary progressive multiple sclerosis [Unknown]
  - Flushing [Not Recovered/Not Resolved]
